FAERS Safety Report 8345923-6 (Version None)
Quarter: 2012Q2

REPORT INFORMATION
  Report Type: 
  Country: None (occurrence: None)
  Receive Date: 20120509
  Receipt Date: 20120504
  Transmission Date: 20120825
  Serious: Yes (Hospitalization, Other)
  Sender: FDA-Public Use
  Company Number: US-AMGEN-USASP2012028274

PATIENT
  Age: 37 Year
  Sex: Female

DRUGS (3)
  1. XGEVA [Suspect]
     Indication: PROPHYLAXIS
     Dates: start: 20110101
  2. ABRAXANE [Concomitant]
  3. XELODA [Concomitant]

REACTIONS (6)
  - BREAST CANCER RECURRENT [None]
  - BLOOD PHOSPHORUS DECREASED [None]
  - BLOOD CALCIUM DECREASED [None]
  - NEOPLASM PROGRESSION [None]
  - TREATMENT FAILURE [None]
  - BLOOD POTASSIUM DECREASED [None]
